FAERS Safety Report 24557788 (Version 6)
Quarter: 2025Q3

REPORT INFORMATION
  Report Type: Spontaneous
  Country: US (occurrence: US)
  Receive Date: 20241028
  Receipt Date: 20250806
  Transmission Date: 20251021
  Serious: Yes (Hospitalization, Other)
  Sender: SUNOVION
  Company Number: US-SMPA-2024SPA004252AA

PATIENT
  Age: 76 Year
  Sex: Male

DRUGS (19)
  1. ORGOVYX [Suspect]
     Active Substance: RELUGOLIX
     Indication: Prostate cancer
     Route: 048
  2. ASPIRIN [Concomitant]
     Active Substance: ASPIRIN
  3. ATORVASTATIN [Concomitant]
     Active Substance: ATORVASTATIN
  4. VITAMIN B COMPLEX [Concomitant]
     Active Substance: CYANOCOBALAMIN\DEXPANTHENOL\NIACINAMIDE\PYRIDOXINE HYDROCHLORIDE\RIBOFLAVIN 5^-PHOSPHATE SODIUM\THIA
  5. CLONIDINE [Concomitant]
     Active Substance: CLONIDINE
  6. CRANBERRY [Concomitant]
     Active Substance: CRANBERRY
  7. FINASTERIDE [Concomitant]
     Active Substance: FINASTERIDE
  8. IBUPROFEN [Concomitant]
     Active Substance: IBUPROFEN
  9. LORATADINE [Concomitant]
     Active Substance: LORATADINE
  10. LOSARTAN [Concomitant]
     Active Substance: LOSARTAN
  11. MAGNESIUM OXIDE [Concomitant]
     Active Substance: MAGNESIUM OXIDE
  12. MEGESTROL [Concomitant]
     Active Substance: MEGESTROL
  13. METOPROLOL [Concomitant]
     Active Substance: METOPROLOL
  14. OTEZLA [Concomitant]
     Active Substance: APREMILAST
  15. PANTOPRAZOLE [Concomitant]
     Active Substance: PANTOPRAZOLE
  16. TAMSULOSIN [Concomitant]
     Active Substance: TAMSULOSIN
  17. Triple omega complex 3-6-9 [Concomitant]
  18. VITAMIN C [Concomitant]
     Active Substance: ASCORBIC ACID
  19. PLAVIX [Concomitant]
     Active Substance: CLOPIDOGREL BISULFATE

REACTIONS (9)
  - Post procedural haemorrhage [Unknown]
  - Anaemia [Unknown]
  - Carotid artery stent insertion [Unknown]
  - Hot flush [Unknown]
  - Weight increased [Unknown]
  - Diarrhoea [Unknown]
  - Constipation [Unknown]
  - Product use issue [Unknown]
  - Product dose omission issue [Recovered/Resolved]

NARRATIVE: CASE EVENT DATE: 20250601
